FAERS Safety Report 26040839 (Version 1)
Quarter: 2025Q4

REPORT INFORMATION
  Report Type: Spontaneous
  Country: US (occurrence: None)
  Receive Date: 20251113
  Receipt Date: 20251113
  Transmission Date: 20260118
  Serious: Yes (Other)
  Sender: FDA-CTU
  Company Number: None

PATIENT
  Age: 64 Year
  Sex: Male

DRUGS (1)
  1. YESINTEK [Suspect]
     Active Substance: USTEKINUMAB-KFCE
     Indication: Proctitis ulcerative
     Dosage: OTHER FREQUENCY : INJECT 1 SYRINGE SC EVERY 8 WEEKS ;?

REACTIONS (1)
  - Colitis [None]
